FAERS Safety Report 9267280 (Version 3)
Quarter: 2013Q2

REPORT INFORMATION
  Report Type: Report from Study
  Country: CA (occurrence: CA)
  Receive Date: 20130502
  Receipt Date: 20130514
  Transmission Date: 20140414
  Serious: Yes (Death, Hospitalization)
  Sender: FDA-Public Use
  Company Number: PHHY2013CA043357

PATIENT
  Age: 79 Year
  Sex: Female

DRUGS (2)
  1. ACLASTA [Suspect]
     Indication: OSTEOPOROSIS
     Dosage: UNK
     Route: 042
     Dates: start: 20120514
  2. PANTOLOC [Concomitant]
     Dosage: 40 MG, UNK

REACTIONS (5)
  - Death [Fatal]
  - Abscess [Unknown]
  - Dyspnoea [Unknown]
  - Duodenal ulcer [Unknown]
  - Chronic obstructive pulmonary disease [Unknown]
